FAERS Safety Report 7283303-5 (Version None)
Quarter: 2011Q1

REPORT INFORMATION
  Report Type: 
  Country: None (occurrence: None)
  Receive Date: 20110209
  Receipt Date: 20110128
  Transmission Date: 20110831
  Serious: Yes (Other)
  Sender: FDA-Public Use
  Company Number: GB-JNJFOC-20110107483

PATIENT
  Age: 45 Year
  Sex: Female
  Weight: 61 kg

DRUGS (5)
  1. CITALOPRAM [Concomitant]
  2. PARACETAMOL [Suspect]
     Indication: PRODUCT USED FOR UNKNOWN INDICATION
  3. CITALOPRAM [Concomitant]
  4. PARACETAMOL [Suspect]
  5. DIAZEPAM [Concomitant]
     Indication: ILL-DEFINED DISORDER

REACTIONS (1)
  - RASH PRURITIC [None]
